FAERS Safety Report 5917914-3 (Version None)
Quarter: 2008Q4

REPORT INFORMATION
  Report Type: 
  Country: None (occurrence: None)
  Receive Date: 20081014
  Receipt Date: 20081002
  Transmission Date: 20090506
  Serious: Yes (Hospitalization)
  Sender: FDA-Public Use
  Company Number: FR-PFIZER INC-2008083577

PATIENT
  Sex: Female

DRUGS (1)
  1. SALAZOPYRINE [Suspect]

REACTIONS (11)
  - CYTOLYTIC HEPATITIS [None]
  - DRUG HYPERSENSITIVITY [None]
  - DRUG RASH WITH EOSINOPHILIA AND SYSTEMIC SYMPTOMS [None]
  - ERYTHEMA NODOSUM [None]
  - HEPATITIS CHOLESTATIC [None]
  - INFLAMMATION [None]
  - PYREXIA [None]
  - RASH ERYTHEMATOUS [None]
  - RASH MACULAR [None]
  - RENAL FAILURE [None]
  - VASCULITIS [None]
